FAERS Safety Report 9355772 (Version 1)
Quarter: 2013Q2

REPORT INFORMATION
  Report Type: Spontaneous
  Country: US (occurrence: US)
  Receive Date: 20130619
  Receipt Date: 20130619
  Transmission Date: 20140414
  Serious: Yes (Hospitalization)
  Sender: FDA-Public Use
  Company Number: US-NOVEN-13US007056

PATIENT
  Age: 19 Year
  Sex: Male

DRUGS (5)
  1. LITHOBID [Suspect]
     Indication: MOOD SWINGS
     Dosage: 600 MG, MORNING
     Route: 048
  2. LITHOBID [Suspect]
     Dosage: 900 MG, EVENING
     Route: 048
  3. LITHIUM [Suspect]
     Indication: MOOD SWINGS
     Dosage: 600 MG, MORNING
     Route: 048
     Dates: start: 20130531, end: 20130604
  4. LITHIUM [Suspect]
     Dosage: 900 MG, EVENING
     Route: 048
     Dates: start: 20130531, end: 20130604
  5. CLOZAPINE [Concomitant]
     Indication: PRODUCT USED FOR UNKNOWN INDICATION
     Dosage: UNK
     Route: 048

REACTIONS (2)
  - Aggression [Recovered/Resolved]
  - Neutrophil count decreased [Not Recovered/Not Resolved]
